FAERS Safety Report 16827773 (Version 1)
Quarter: 2019Q3

REPORT INFORMATION
  Report Type: Spontaneous
  Country: BE (occurrence: BE)
  Receive Date: 20190919
  Receipt Date: 20190919
  Transmission Date: 20191005
  Serious: Yes (Death, Other)
  Sender: FDA-Public Use
  Company Number: BE-ACTELION-A-CH2019-195497

PATIENT
  Sex: Female

DRUGS (2)
  1. SILDENAFIL. [Concomitant]
     Active Substance: SILDENAFIL
     Indication: PULMONARY ARTERIAL HYPERTENSION
     Dosage: 10 MG, TID
     Route: 048
  2. BOSENTAN. [Suspect]
     Active Substance: BOSENTAN
     Indication: PULMONARY ARTERIAL HYPERTENSION
     Dosage: 10 MG, BID
     Route: 048

REACTIONS (8)
  - Central nervous system necrosis [Unknown]
  - Liver function test abnormal [Unknown]
  - Neurological decompensation [Fatal]
  - Seizure [Unknown]
  - Decreased eye contact [Unknown]
  - Metabolic disorder [Fatal]
  - Hypotonia [Unknown]
  - Quadriplegia [Unknown]
